FAERS Safety Report 7432035-9 (Version None)
Quarter: 2011Q2

REPORT INFORMATION
  Report Type: 
  Country: None (occurrence: None)
  Receive Date: 20110422
  Receipt Date: 20110415
  Transmission Date: 20111010
  Serious: Yes (Hospitalization)
  Sender: FDA-Public Use
  Company Number: US-BRISTOL-MYERS SQUIBB COMPANY-15678394

PATIENT
  Age: 52 Year
  Sex: Male

DRUGS (5)
  1. ZETIA [Concomitant]
  2. LIPITOR [Concomitant]
  3. AVAPRO [Suspect]
     Indication: HYPERTENSION
  4. AVAPRO [Suspect]
     Indication: CONGENITAL CYSTIC KIDNEY DISEASE
  5. TOPROL-XL [Concomitant]

REACTIONS (1)
  - NEPHROLITHIASIS [None]
